FAERS Safety Report 10210449 (Version 2)
Quarter: 2014Q3

REPORT INFORMATION
  Report Type: Spontaneous
  Country: US (occurrence: US)
  Receive Date: 20140602
  Receipt Date: 20140724
  Transmission Date: 20150326
  Serious: Yes (Death, Life-Threatening, Hospitalization, Other)
  Sender: FDA-Public Use
  Company Number: US-MERCK-1406USA000496

PATIENT
  Sex: Male
  Weight: 103.86 kg

DRUGS (2)
  1. JANUMET [Suspect]
     Active Substance: METFORMIN HYDROCHLORIDE\SITAGLIPTIN PHOSPHATE
     Indication: TYPE 2 DIABETES MELLITUS
     Dosage: 50-1000 MG, QD
     Route: 048
     Dates: start: 20130116, end: 20130311
  2. JANUVIA [Suspect]
     Active Substance: SITAGLIPTIN PHOSPHATE
     Indication: TYPE 2 DIABETES MELLITUS
     Dosage: 100 MG, QD
     Route: 048
     Dates: start: 20071123, end: 20121008

REACTIONS (44)
  - Metastases to nervous system [Unknown]
  - Haematuria [Unknown]
  - Constipation [Unknown]
  - Inguinal hernia [Unknown]
  - Cerebrovascular accident [Unknown]
  - Metastases to lymph nodes [Unknown]
  - Prostatomegaly [Unknown]
  - Bladder outlet obstruction [Unknown]
  - Cardiac failure [Unknown]
  - Pulmonary fibrosis [Unknown]
  - Pulmonary granuloma [Unknown]
  - Dehydration [Unknown]
  - Electrolyte imbalance [Unknown]
  - Thrombosis [Unknown]
  - Urine flow decreased [Unknown]
  - Hydronephrosis [Unknown]
  - Nephrolithiasis [Unknown]
  - Seminal vesicular disorder [Unknown]
  - Pancreatic carcinoma metastatic [Fatal]
  - Metastases to peritoneum [Unknown]
  - Hyperkalaemia [Unknown]
  - Bundle branch block left [Unknown]
  - Atelectasis [Unknown]
  - Lung infection [Unknown]
  - Headache [Unknown]
  - Renal failure acute [Unknown]
  - Aortic arteriosclerosis [Unknown]
  - Spinal osteoarthritis [Unknown]
  - Pollakiuria [Unknown]
  - Hyperlipidaemia [Unknown]
  - Myoclonus [Unknown]
  - Metabolic disorder [Unknown]
  - Amnesia [Unknown]
  - Gastrooesophageal reflux disease [Unknown]
  - Metastases to liver [Unknown]
  - Diverticulum intestinal [Unknown]
  - Urinary hesitation [Unknown]
  - Haematochezia [Unknown]
  - Calculus ureteric [Unknown]
  - Metastases to lung [Unknown]
  - Mesenteric vein thrombosis [Unknown]
  - Haemangioma of bone [Unknown]
  - Erectile dysfunction [Unknown]
  - Generalised oedema [Unknown]

NARRATIVE: CASE EVENT DATE: 20120208
